FAERS Safety Report 6338007-X (Version None)
Quarter: 2009Q3

REPORT INFORMATION
  Report Type: 
  Country: None (occurrence: None)
  Receive Date: 20090902
  Receipt Date: 20090820
  Transmission Date: 20100115
  Serious: Yes (Other)
  Sender: FDA-Public Use
  Company Number: GB-PFIZER INC-2009257211

PATIENT
  Age: 40 Year

DRUGS (2)
  1. CHAMPIX [Suspect]
     Indication: SMOKING CESSATION THERAPY
     Dosage: 1 DF, 1X/DAY
     Route: 048
     Dates: start: 20090708, end: 20090722
  2. REDUCTIL [Concomitant]
     Indication: WEIGHT DECREASED
     Dosage: 1 DF, 1X/DAY
     Route: 048
     Dates: start: 20090701

REACTIONS (3)
  - DEPRESSION [None]
  - SWELLING FACE [None]
  - TEARFULNESS [None]
